FAERS Safety Report 19748459 (Version 2)
Quarter: 2021Q4

REPORT INFORMATION
  Report Type: Spontaneous
  Country: US (occurrence: None)
  Receive Date: 20210826
  Receipt Date: 20211213
  Transmission Date: 20220303
  Serious: Yes (Death, Other)
  Sender: FDA-Public Use
  Company Number: 2021A695891

PATIENT
  Age: 27369 Day
  Sex: Female
  Weight: 72.6 kg

DRUGS (43)
  1. NEXIUM [Suspect]
     Active Substance: ESOMEPRAZOLE MAGNESIUM
     Indication: Gastrooesophageal reflux disease
     Route: 048
     Dates: start: 2000, end: 2017
  2. NEXIUM [Suspect]
     Active Substance: ESOMEPRAZOLE MAGNESIUM
     Indication: Gastrooesophageal reflux disease
     Route: 048
     Dates: start: 2007, end: 201704
  3. NEXIUM [Suspect]
     Active Substance: ESOMEPRAZOLE MAGNESIUM
     Indication: Gastrooesophageal reflux disease
     Dosage: GENERIC
     Route: 065
     Dates: start: 2016, end: 201909
  4. DOXEPIN [Concomitant]
     Active Substance: DOXEPIN
     Indication: Antidepressant therapy
     Route: 065
     Dates: start: 1972, end: 201908
  5. HYDROXYZINE [Concomitant]
     Active Substance: HYDROXYZINE HYDROCHLORIDE
     Indication: Anxiety
     Route: 065
     Dates: start: 2017, end: 2017
  6. THIOTHIXENE [Concomitant]
     Active Substance: THIOTHIXENE
     Indication: Antipsychotic therapy
     Route: 065
     Dates: start: 1972, end: 201708
  7. CETIRIZINE HYDROCHLORIDE [Concomitant]
     Active Substance: CETIRIZINE HYDROCHLORIDE
     Indication: Hypersensitivity
     Route: 065
     Dates: start: 1999, end: 201908
  8. LOSARTAN [Concomitant]
     Active Substance: LOSARTAN
     Indication: Blood pressure abnormal
     Route: 065
     Dates: start: 2010, end: 201908
  9. TYLENOL [Concomitant]
     Active Substance: ACETAMINOPHEN
     Indication: Arthritis
     Route: 065
     Dates: start: 2000, end: 2019
  10. TYLENOL [Concomitant]
     Active Substance: ACETAMINOPHEN
     Indication: Pain
     Route: 065
     Dates: start: 2000, end: 2019
  11. VITAMINS [Concomitant]
     Active Substance: VITAMINS
     Indication: Supplementation therapy
     Route: 065
     Dates: start: 1994, end: 2019
  12. ROLAIDS [Concomitant]
     Active Substance: CALCIUM CARBONATE\MAGNESIUM HYDROXIDE
     Route: 065
     Dates: start: 2000, end: 2007
  13. TUMS [Concomitant]
     Active Substance: CALCIUM CARBONATE
     Route: 065
     Dates: start: 2000, end: 2007
  14. PEPTO-BISMOL [Concomitant]
     Active Substance: BISMUTH SUBSALICYLATE
     Route: 065
     Dates: start: 2000, end: 2007
  15. SIMVASTATIN [Concomitant]
     Active Substance: SIMVASTATIN
  16. LEVOXYL [Concomitant]
     Active Substance: LEVOTHYROXINE SODIUM
  17. MELOXICAM [Concomitant]
     Active Substance: MELOXICAM
  18. CHLORAZEPAM [Concomitant]
     Active Substance: CHLORAZEPAM
  19. DIOVAN [Concomitant]
     Active Substance: VALSARTAN
  20. METHYLPREDNISOLONE [Concomitant]
     Active Substance: METHYLPREDNISOLONE
  21. MECLIZINE [Concomitant]
     Active Substance: MECLIZINE HYDROCHLORIDE
  22. TRAMADOL [Concomitant]
     Active Substance: TRAMADOL
  23. LEVOTHYROXINE [Concomitant]
     Active Substance: LEVOTHYROXINE
  24. WARFARIN [Concomitant]
     Active Substance: WARFARIN
  25. VOLTAREN [Concomitant]
     Active Substance: DICLOFENAC SODIUM
  26. CEPHALEXIN [Concomitant]
     Active Substance: CEPHALEXIN
  27. FLUTICASONE [Concomitant]
     Active Substance: FLUTICASONE
  28. DOXEPIN [Concomitant]
     Active Substance: DOXEPIN
  29. POLYETHYLENE GLYCOL [Concomitant]
     Active Substance: POLYETHYLENE GLYCOL
  30. GABAPENTIN [Concomitant]
     Active Substance: GABAPENTIN
  31. CIPROFLOXACIN [Concomitant]
     Active Substance: CIPROFLOXACIN
  32. METOPROLOL [Concomitant]
     Active Substance: METOPROLOL
  33. PHENAZOPYRIDINE [Concomitant]
     Active Substance: PHENAZOPYRIDINE
  34. VALACYCLOVIR [Concomitant]
     Active Substance: VALACYCLOVIR HYDROCHLORIDE
  35. NAVANE [Concomitant]
     Active Substance: THIOTHIXENE
  36. LOVENOX [Concomitant]
     Active Substance: ENOXAPARIN SODIUM
  37. PREDNISOLONE [Concomitant]
     Active Substance: PREDNISOLONE
  38. GEMFIBROZIL [Concomitant]
     Active Substance: GEMFIBROZIL
  39. LIPITOR [Concomitant]
     Active Substance: ATORVASTATIN CALCIUM
  40. HYZAAR [Concomitant]
     Active Substance: HYDROCHLOROTHIAZIDE\LOSARTAN POTASSIUM
  41. CLINDAMYCIN [Concomitant]
     Active Substance: CLINDAMYCIN
  42. ALENDRONATE [Concomitant]
     Active Substance: ALENDRONATE SODIUM
  43. TOBRAMYCIN [Concomitant]
     Active Substance: TOBRAMYCIN

REACTIONS (1)
  - Adenocarcinoma gastric [Fatal]

NARRATIVE: CASE EVENT DATE: 20181025
